FAERS Safety Report 23421195 (Version 1)
Quarter: 2024Q1

REPORT INFORMATION
  Report Type: Spontaneous
  Country: JP (occurrence: JP)
  Receive Date: 20240119
  Receipt Date: 20240119
  Transmission Date: 20240410
  Serious: Yes (Other)
  Sender: FDA-Public Use
  Company Number: JP-MYLANLABS-2024M1004525

PATIENT
  Age: 73 Year
  Sex: Female

DRUGS (5)
  1. EPIRUBICIN [Suspect]
     Active Substance: EPIRUBICIN
     Indication: Metaplastic breast carcinoma
     Route: 065
  2. CYCLOPHOSPHAMIDE [Suspect]
     Active Substance: CYCLOPHOSPHAMIDE
     Indication: Metaplastic breast carcinoma
     Route: 065
  3. DOCETAXEL [Suspect]
     Active Substance: DOCETAXEL\DOCETAXEL ANHYDROUS
     Indication: Metaplastic breast carcinoma
     Route: 065
  4. PERTUZUMAB [Suspect]
     Active Substance: PERTUZUMAB
     Indication: Metaplastic breast carcinoma
     Route: 065
  5. TRASTUZUMAB [Suspect]
     Active Substance: TRASTUZUMAB
     Indication: Metaplastic breast carcinoma
     Route: 065

REACTIONS (1)
  - Drug ineffective [Unknown]
